FAERS Safety Report 9420784 (Version 1)
Quarter: 2013Q3

REPORT INFORMATION
  Report Type: Spontaneous
  Country: US (occurrence: US)
  Receive Date: 20130725
  Receipt Date: 20130725
  Transmission Date: 20140515
  Serious: No
  Sender: FDA-Public Use
  Company Number: US-ABBOTT-13P-163-1077049-00

PATIENT
  Sex: Female
  Weight: 61.29 kg

DRUGS (3)
  1. SYNTHROID [Suspect]
     Indication: HYPOTHYROIDISM
     Dates: start: 2007
  2. ALIGN [Concomitant]
     Indication: SUPPLEMENTATION THERAPY
  3. PEPCID AC [Concomitant]
     Indication: DYSPEPSIA

REACTIONS (2)
  - Rash [Not Recovered/Not Resolved]
  - Product physical issue [Unknown]
